FAERS Safety Report 5939719-X (Version None)
Quarter: 2008Q4

REPORT INFORMATION
  Report Type: 
  Country: None (occurrence: None)
  Receive Date: 20081031
  Receipt Date: 20081031
  Transmission Date: 20090506
  Serious: No
  Sender: FDA-Public Use
  Company Number: None

PATIENT
  Age: 58 Year
  Sex: Female
  Weight: 87.0906 kg

DRUGS (1)
  1. SUTENT [Suspect]
     Indication: MULTIPLE MYELOMA
     Dosage: SUTENT 37.5MG DAILY PO
     Route: 048
     Dates: start: 20080905, end: 20081025

REACTIONS (8)
  - ERYTHEMA [None]
  - EYE SWELLING [None]
  - FEELING HOT [None]
  - HEADACHE [None]
  - LOCAL SWELLING [None]
  - PAIN [None]
  - SWELLING [None]
  - SWELLING FACE [None]
